FAERS Safety Report 19904174 (Version 2)
Quarter: 2022Q2

REPORT INFORMATION
  Report Type: Spontaneous
  Country: US (occurrence: US)
  Receive Date: 20211001
  Receipt Date: 20220512
  Transmission Date: 20220721
  Serious: No
  Sender: FDA-Public Use
  Company Number: US-PFIZER INC-2021251483

PATIENT
  Age: 63 Year
  Sex: Male
  Weight: 99.773 kg

DRUGS (1)
  1. CHANTIX [Suspect]
     Active Substance: VARENICLINE TARTRATE
     Dosage: UNK
     Dates: start: 2018

REACTIONS (2)
  - Chronic obstructive pulmonary disease [Unknown]
  - Product use issue [Unknown]
